FAERS Safety Report 25857055 (Version 2)
Quarter: 2025Q4

REPORT INFORMATION
  Report Type: Spontaneous
  Country: GB (occurrence: GB)
  Receive Date: 20250929
  Receipt Date: 20251001
  Transmission Date: 20260117
  Serious: Yes (Other)
  Sender: AMGEN
  Company Number: GB-Vifor (International) Inc.-VIT-2024-10192

PATIENT
  Age: 55 Year
  Sex: Male
  Weight: 91.5 kg

DRUGS (30)
  1. TAVNEOS [Suspect]
     Active Substance: AVACOPAN
     Indication: Anti-neutrophil cytoplasmic antibody positive vasculitis
     Dosage: 30 MG, BID
     Route: 048
     Dates: start: 20240119, end: 20250118
  2. METHYLPREDNISOLONE [Concomitant]
     Active Substance: METHYLPREDNISOLONE
     Indication: Anti-neutrophil cytoplasmic antibody positive vasculitis
     Dosage: 250 MG, OD
     Route: 065
     Dates: start: 20240104, end: 20240106
  3. RITUXIMAB [Concomitant]
     Active Substance: RITUXIMAB
     Indication: Anti-neutrophil cytoplasmic antibody positive vasculitis
     Dosage: 800 MILLIGRAM, AS NECESSARY
     Route: 040
     Dates: start: 202401, end: 202401
  4. RITUXIMAB [Concomitant]
     Active Substance: RITUXIMAB
     Dosage: 800 MILLIGRAM, AS NECESSARY
     Route: 065
     Dates: start: 20240105, end: 20240105
  5. RITUXIMAB [Concomitant]
     Active Substance: RITUXIMAB
     Dosage: 1000 MILLIGRAM, AS NECESSARY
     Route: 040
     Dates: start: 20240725, end: 20240725
  6. RITUXIMAB [Concomitant]
     Active Substance: RITUXIMAB
     Dosage: 1000 MILLIGRAM, AS NECESSARY
     Route: 040
     Dates: start: 20241219, end: 20241219
  7. RITUXIMAB [Concomitant]
     Active Substance: RITUXIMAB
     Dosage: 800 MILLIGRAM, AS NECESSARY
     Route: 040
     Dates: start: 202401, end: 202401
  8. RITUXIMAB [Concomitant]
     Active Substance: RITUXIMAB
     Dosage: 800 MILLIGRAM, AS NECESSARY
     Route: 040
     Dates: start: 20240126, end: 20240126
  9. RITUXIMAB [Concomitant]
     Active Substance: RITUXIMAB
     Dosage: 800 MILLIGRAM, AS NECESSARY
     Route: 040
     Dates: start: 202401, end: 202401
  10. RITUXIMAB [Concomitant]
     Active Substance: RITUXIMAB
     Dosage: 1000 MILLIGRAM, AS NECESSARY
     Route: 040
     Dates: start: 20250617, end: 20250617
  11. RITUXIMAB [Concomitant]
     Active Substance: RITUXIMAB
     Dosage: 1000 MILLIGRAM, AS NECESSARY
     Route: 040
     Dates: start: 20240725, end: 20240725
  12. RITUXIMAB [Concomitant]
     Active Substance: RITUXIMAB
     Dosage: 1000 MILLIGRAM, AS NECESSARY
     Route: 040
     Dates: start: 20241219, end: 20241219
  13. CYCLOPHOSPHAMIDE [Concomitant]
     Active Substance: CYCLOPHOSPHAMIDE
     Indication: Anti-neutrophil cytoplasmic antibody positive vasculitis
     Dosage: 1000 MILLIGRAM, AS NECESSARY
     Route: 040
     Dates: start: 20240126, end: 20240126
  14. CYCLOPHOSPHAMIDE [Concomitant]
     Active Substance: CYCLOPHOSPHAMIDE
     Dosage: 1000 MILLIGRAM, AS NECESSARY
     Route: 040
     Dates: start: 20240208, end: 20240208
  15. PREDNISOLONE [Concomitant]
     Active Substance: PREDNISOLONE
     Indication: Anti-neutrophil cytoplasmic antibody positive vasculitis
     Dosage: 100 MG, OD
     Route: 048
     Dates: start: 20240107, end: 20240113
  16. PREDNISOLONE [Concomitant]
     Active Substance: PREDNISOLONE
     Dosage: 50 MG, OD
     Route: 048
     Dates: start: 20240114, end: 20240120
  17. PREDNISOLONE [Concomitant]
     Active Substance: PREDNISOLONE
     Dosage: 47.5 MG, OD
     Route: 048
     Dates: start: 20240121, end: 20240127
  18. PREDNISOLONE [Concomitant]
     Active Substance: PREDNISOLONE
     Dosage: 45 MG, OD
     Route: 048
     Dates: start: 20240128, end: 20240203
  19. PREDNISOLONE [Concomitant]
     Active Substance: PREDNISOLONE
     Dosage: 42.5 MG, OD
     Route: 048
     Dates: start: 20240204, end: 20240210
  20. PREDNISOLONE [Concomitant]
     Active Substance: PREDNISOLONE
     Dosage: 40 MG, OD
     Route: 048
     Dates: start: 20240211, end: 20240217
  21. PREDNISOLONE [Concomitant]
     Active Substance: PREDNISOLONE
     Dosage: 37.5 MG, OD
     Route: 048
     Dates: start: 20240218, end: 20240224
  22. PREDNISOLONE [Concomitant]
     Active Substance: PREDNISOLONE
     Dosage: 35 MG, OD
     Route: 048
     Dates: start: 20240225, end: 20240302
  23. PREDNISOLONE [Concomitant]
     Active Substance: PREDNISOLONE
     Dosage: 30 MG, OD
     Route: 048
     Dates: start: 20240303, end: 20240309
  24. PREDNISOLONE [Concomitant]
     Active Substance: PREDNISOLONE
     Dosage: 20 MG, OD
     Route: 048
     Dates: start: 20240310, end: 20240316
  25. PREDNISOLONE [Concomitant]
     Active Substance: PREDNISOLONE
     Dosage: 10 MG, OD
     Route: 048
     Dates: start: 20240317, end: 20240323
  26. PREDNISOLONE [Concomitant]
     Active Substance: PREDNISOLONE
     Dosage: 5 MG, OD
     Route: 048
     Dates: start: 20240324, end: 20240417
  27. PREDNISOLONE [Concomitant]
     Active Substance: PREDNISOLONE
     Dosage: 2.5 MG, OD
     Route: 048
     Dates: start: 20240418, end: 20240530
  28. DEXAMETHASONE [Concomitant]
     Active Substance: DEXAMETHASONE
     Indication: Prophylaxis
     Dosage: 4 MG, SINGLE IV INFUSION
     Route: 065
     Dates: start: 20240725, end: 20240725
  29. DEXAMETHASONE [Concomitant]
     Active Substance: DEXAMETHASONE
     Dosage: 4 MG, SINGLE IV INFUSION
     Route: 065
     Dates: start: 20241219, end: 20241219
  30. DEXAMETHASONE [Concomitant]
     Active Substance: DEXAMETHASONE
     Dosage: 4 MG, SINGLE IV INFUSION
     Route: 065
     Dates: start: 20250617, end: 20250617

REACTIONS (3)
  - Steroid diabetes [Recovered/Resolved]
  - Oesophageal candidiasis [Recovered/Resolved]
  - Osteoporosis [Not Recovered/Not Resolved]

NARRATIVE: CASE EVENT DATE: 20240101
